FAERS Safety Report 10686819 (Version 1)
Quarter: 2015Q1

REPORT INFORMATION
  Report Type: Spontaneous
  Country: US (occurrence: US)
  Receive Date: 20150101
  Receipt Date: 20150101
  Transmission Date: 20150720
  Serious: Yes (Other)
  Sender: FDA-Public Use
  Company Number: PHEH2014US025768

PATIENT
  Sex: Female

DRUGS (2)
  1. RECLAST [Suspect]
     Active Substance: ZOLEDRONIC ACID
     Indication: OSTEOPOROSIS
     Dosage: 1 DF, (ONCE A YEAR)
     Route: 042
  2. RECLAST [Suspect]
     Active Substance: ZOLEDRONIC ACID
     Indication: SPINAL COMPRESSION FRACTURE

REACTIONS (3)
  - Vertebral lesion [Unknown]
  - Ovarian cyst [Unknown]
  - Carbohydrate antigen 125 increased [Unknown]
